FAERS Safety Report 5372250-1 (Version None)
Quarter: 2007Q2

REPORT INFORMATION
  Report Type: 
  Country: None (occurrence: None)
  Receive Date: 20070618
  Receipt Date: 20070507
  Transmission Date: 20071010
  Serious: Yes (Other)
  Sender: FDA-Public Use
  Company Number: 07-060

PATIENT
  Age: 73 Year
  Sex: Female
  Weight: 79.3795 kg

DRUGS (2)
  1. ALEVE [Suspect]
     Indication: ARTHRALGIA
     Dosage: 660 MG, ORAL
     Route: 048
     Dates: start: 20070428, end: 20070429
  2. ZOCOR [Concomitant]

REACTIONS (2)
  - ABDOMINAL PAIN UPPER [None]
  - HAEMATOCHEZIA [None]
